FAERS Safety Report 20905114 (Version 1)
Quarter: 2022Q2

REPORT INFORMATION
  Report Type: Spontaneous
  Country: CN (occurrence: CN)
  Receive Date: 20220602
  Receipt Date: 20220602
  Transmission Date: 20220720
  Serious: Yes (Death)
  Sender: FDA-Public Use
  Company Number: CN-GYP-001086

PATIENT
  Age: 61 Year
  Sex: Male

DRUGS (3)
  1. PREDNISONE [Suspect]
     Active Substance: PREDNISONE
     Indication: Cronkhite-Canada syndrome
     Dosage: 1-2 WEEKS COURSE OF PREDNISONE AT A DOSE OF 0.75-1MG/KG/DAY
     Route: 065
  2. PROBIOTICS NOS [Concomitant]
     Active Substance: PROBIOTICS NOS
     Indication: Cronkhite-Canada syndrome
     Route: 065
  3. PREDNISONE [Suspect]
     Active Substance: PREDNISONE
     Indication: Cronkhite-Canada syndrome
     Dosage: 4-8 WEEKS
     Route: 065

REACTIONS (4)
  - Fatigue [Fatal]
  - Product use in unapproved indication [Unknown]
  - Organ failure [Fatal]
  - Drug ineffective [Unknown]
